FAERS Safety Report 10590033 (Version 1)
Quarter: 2014Q4

REPORT INFORMATION
  Report Type: Spontaneous
  Country: US (occurrence: None)
  Receive Date: 20141117
  Receipt Date: 20141117
  Transmission Date: 20150529
  Serious: No
  Sender: FDA-Public Use
  Company Number: None

PATIENT
  Age: 16 Year
  Sex: Male
  Weight: 150 kg

DRUGS (3)
  1. PAXIL [Suspect]
     Active Substance: PAROXETINE HYDROCHLORIDE
     Dosage: 10 MG (1 PILL)  QHS/BEDTIME  ORAL
     Route: 048
     Dates: start: 20141108, end: 20141109
  2. LOPID [Concomitant]
     Active Substance: GEMFIBROZIL
  3. AMARYL [Concomitant]
     Active Substance: GLIMEPIRIDE

REACTIONS (1)
  - Sedation [None]

NARRATIVE: CASE EVENT DATE: 20141110
